FAERS Safety Report 24548150 (Version 4)
Quarter: 2025Q4

REPORT INFORMATION
  Report Type: Spontaneous
  Country: EU (occurrence: EU)
  Receive Date: 20241025
  Receipt Date: 20251121
  Transmission Date: 20260118
  Serious: Yes (Death)
  Sender: AMGEN
  Company Number: EU-Vifor (International) Inc.-VIT-2024-09671

PATIENT
  Age: 93 Year
  Sex: Female

DRUGS (10)
  1. TAVNEOS [Suspect]
     Active Substance: AVACOPAN
     Indication: Product used for unknown indication
     Dosage: 30 MG TWICE (UNIT UNSPECIFIED)
     Route: 065
  2. POTASSIUM CHLORIDE [Concomitant]
     Active Substance: POTASSIUM CHLORIDE
     Indication: Product used for unknown indication
     Dosage: UNK,UNK,UNK
     Route: 048
  3. LANSOPRAZOLE [Concomitant]
     Active Substance: LANSOPRAZOLE
     Indication: Product used for unknown indication
     Dosage: UNK,UNK,UNK
     Route: 048
  4. LERCANIDIPINE HYDROCHLORIDE [Concomitant]
     Active Substance: LERCANIDIPINE HYDROCHLORIDE
     Indication: Product used for unknown indication
     Dosage: UNK,UNK,UNK
     Route: 048
  5. ELIQUIS [Concomitant]
     Active Substance: APIXABAN
     Indication: Product used for unknown indication
     Dosage: UNK,UNK,UNK
     Route: 048
  6. FUROSEMIDE [Concomitant]
     Active Substance: FUROSEMIDE
     Indication: Product used for unknown indication
     Dosage: UNK,UNK,UNK
     Route: 048
  7. NEBIVOLOL [Concomitant]
     Active Substance: NEBIVOLOL
     Indication: Product used for unknown indication
     Dosage: UNK,UNK,UNK
     Route: 048
  8. DESLORATADINE [Concomitant]
     Active Substance: DESLORATADINE
     Indication: Product used for unknown indication
     Dosage: UNK,UNK,UNK
     Route: 048
  9. ALLOPURINOL [Concomitant]
     Active Substance: ALLOPURINOL
     Indication: Product used for unknown indication
     Dosage: UNK,UNK,UNK
     Route: 048
  10. OXAZEPAM [Concomitant]
     Active Substance: OXAZEPAM
     Dosage: UNK,UNK,UNK
     Route: 048

REACTIONS (1)
  - Death [Fatal]

NARRATIVE: CASE EVENT DATE: 20240101
